FAERS Safety Report 5030729-6 (Version None)
Quarter: 2006Q2

REPORT INFORMATION
  Report Type: 
  Country: None (occurrence: None)
  Receive Date: 20060615
  Receipt Date: 20060607
  Transmission Date: 20061013
  Serious: Yes (Hospitalization)
  Sender: FDA-Public Use
  Company Number: 2006066124

PATIENT
  Age: 79 Year
  Sex: Male

DRUGS (13)
  1. AMLODIPINE [Suspect]
     Indication: HYPERTENSION
     Dosage: 5 MG (5 MG, QD), ORAL
     Route: 048
     Dates: start: 20030101, end: 20060409
  2. METOPROLOL SUCCINATE [Suspect]
     Indication: HYPERTENSION
     Dosage: 100 MG (100 MG, QD)
     Dates: start: 19950101, end: 20060409
  3. E2020 (DONEPEZIL) [Suspect]
     Indication: DEMENTIA ALZHEIMER'S TYPE
     Dosage: SEE IMAGE
     Dates: start: 20060224, end: 20060406
  4. E2020 (DONEPEZIL) [Suspect]
     Indication: DEMENTIA ALZHEIMER'S TYPE
     Dosage: SEE IMAGE
     Dates: start: 20060407, end: 20060409
  5. E2020 (DONEPEZIL) [Suspect]
     Indication: DEMENTIA ALZHEIMER'S TYPE
     Dosage: SEE IMAGE
     Dates: start: 20060415, end: 20060517
  6. PLAVIX [Concomitant]
  7. ASPIRIN [Concomitant]
  8. EZETIMIBE (SIMVASTATIN (EZETIMIBE, SIMVASTATIN) [Concomitant]
  9. OMEPRAZOLE [Concomitant]
  10. ZOLPIDEM (ZOLPIDEM) [Concomitant]
  11. LOPERAMIDE HCL [Concomitant]
  12. CLARINEX [Concomitant]
  13. NABUMETONE [Concomitant]

REACTIONS (1)
  - CARDIAC FAILURE CONGESTIVE [None]
